FAERS Safety Report 23995036 (Version 1)
Quarter: 2024Q2

REPORT INFORMATION
  Report Type: Spontaneous
  Country: US (occurrence: US)
  Receive Date: 20240620
  Receipt Date: 20240620
  Transmission Date: 20240715
  Serious: No
  Sender: FDA-Public Use
  Company Number: US-ROCHE-10000002936

PATIENT
  Age: 78 Year
  Sex: Female
  Weight: 58.06 kg

DRUGS (8)
  1. ACTEMRA [Suspect]
     Active Substance: TOCILIZUMAB
     Indication: Giant cell arteritis
     Dosage: 0.9ML/ ABDOMEN
     Route: 058
     Dates: start: 202105, end: 2022
  2. ACTEMRA [Suspect]
     Active Substance: TOCILIZUMAB
     Dosage: 0.9 ML/ABDOMEN
     Route: 058
     Dates: start: 2022, end: 2022
  3. ACTEMRA [Suspect]
     Active Substance: TOCILIZUMAB
     Dosage: 0.9 ML/ ABDOMEN
     Route: 058
     Dates: start: 2022, end: 202309
  4. ACTEMRA [Suspect]
     Active Substance: TOCILIZUMAB
     Dosage: 0.9ML/ ABDOMEN
     Route: 058
     Dates: start: 202401, end: 202402
  5. ACTEMRA [Suspect]
     Active Substance: TOCILIZUMAB
     Dosage: 0.9ML/ ABDOMEN
     Route: 058
     Dates: start: 20240527
  6. XOLAIR [Suspect]
     Active Substance: OMALIZUMAB
     Indication: Product used for unknown indication
     Route: 065
  7. LEVOTHYROXINE [Concomitant]
     Active Substance: LEVOTHYROXINE\LEVOTHYROXINE SODIUM
     Dosage: DOES NOT TAKE A DOSE ON SUNDAYS
     Route: 048
  8. LEVOTHYROXINE [Concomitant]
     Active Substance: LEVOTHYROXINE\LEVOTHYROXINE SODIUM
     Dosage: TAKES HALF TABLET ON WEDNESDAYS
     Route: 048

REACTIONS (2)
  - Red blood cell sedimentation rate increased [Not Recovered/Not Resolved]
  - Off label use [Unknown]

NARRATIVE: CASE EVENT DATE: 20220101
